FAERS Safety Report 10051620 (Version 1)
Quarter: 2014Q1

REPORT INFORMATION
  Report Type: Spontaneous
  Country: US (occurrence: None)
  Receive Date: 20140331
  Receipt Date: 20140331
  Transmission Date: 20141002
  Serious: Yes (Hospitalization)
  Sender: FDA-Public Use
  Company Number: 2014HINLIT0271

PATIENT
  Age: 65 Year
  Sex: Male

DRUGS (9)
  1. LITHIUM (LITHIUM) UNKNOWN [Suspect]
     Indication: BIPOLAR I DISORDER
     Route: 048
  2. METOPROLOL (METOPROLOL) [Concomitant]
  3. ASPIRIN (ASPIRIN) [Concomitant]
  4. WARFARIN [Concomitant]
  5. LISINOPRIL [Concomitant]
  6. SPIRONOLACTONE [Concomitant]
  7. SIMVASTATIN [Concomitant]
  8. GABAPENTIN [Concomitant]
  9. SILDENAFIL [Concomitant]

REACTIONS (17)
  - Azotaemia [None]
  - Toxicity to various agents [None]
  - Aphasia [None]
  - Tremor [None]
  - Fall [None]
  - Head injury [None]
  - Memory impairment [None]
  - Polydipsia [None]
  - Polyuria [None]
  - Antipsychotic drug level above therapeutic [None]
  - International normalised ratio decreased [None]
  - Confusional state [None]
  - Macrocytosis [None]
  - Acute prerenal failure [None]
  - Dehydration [None]
  - Weight decreased [None]
  - Loss of consciousness [None]
